FAERS Safety Report 6564203-2 (Version None)
Quarter: 2010Q1

REPORT INFORMATION
  Report Type: 
  Country: None (occurrence: None)
  Receive Date: 20100131
  Receipt Date: 20100129
  Transmission Date: 20100710
  Serious: No
  Sender: FDA-Public Use
  Company Number: US-ALLERGAN-1001171US

PATIENT
  Sex: Male

DRUGS (1)
  1. BOTOX [Suspect]
     Indication: CEREBRAL PALSY
     Dosage: 50 UNITS, SINGLE
     Route: 030
     Dates: start: 20091103, end: 20091103

REACTIONS (1)
  - GAIT DISTURBANCE [None]
